FAERS Safety Report 8110486-7 (Version None)
Quarter: 2012Q1

REPORT INFORMATION
  Report Type: 
  Country: None (occurrence: None)
  Receive Date: 20120202
  Receipt Date: 20120125
  Transmission Date: 20120608
  Serious: Yes (Hospitalization, Other)
  Sender: FDA-Public Use
  Company Number: US-ASTRAZENECA-2011SE68834

PATIENT
  Age: 47 Year
  Sex: Female
  Weight: 62.6 kg

DRUGS (1)
  1. SEROQUEL XR [Suspect]
     Indication: PSYCHOTIC DISORDER
     Route: 048

REACTIONS (16)
  - GASTROOESOPHAGEAL REFLUX DISEASE [None]
  - OFF LABEL USE [None]
  - WRONG DRUG ADMINISTERED [None]
  - DRUG DOSE OMISSION [None]
  - MENTAL DISORDER [None]
  - RENAL FAILURE [None]
  - ASPIRATION [None]
  - EAR INFECTION [None]
  - RESPIRATORY DEPRESSION [None]
  - CARDIAC DISORDER [None]
  - HALLUCINATION, AUDITORY [None]
  - BRONCHITIS CHRONIC [None]
  - CHRONIC OBSTRUCTIVE PULMONARY DISEASE [None]
  - ULCER [None]
  - SEDATION [None]
  - DRUG PRESCRIBING ERROR [None]
